FAERS Safety Report 6498284-1 (Version None)
Quarter: 2009Q4

REPORT INFORMATION
  Report Type: 
  Country: None (occurrence: None)
  Receive Date: 20091127
  Receipt Date: 20090612
  Transmission Date: 20100525
  Serious: Yes (Hospitalization)
  Sender: FDA-Public Use
  Company Number: 286107

PATIENT
  Age: 21 Year
  Sex: Female

DRUGS (3)
  1. NOVOLOG [Suspect]
     Indication: TYPE 1 DIABETES MELLITUS
     Dosage: TID, SUBCUTANEOUS
     Route: 058
  2. NOVOLOG [Suspect]
  3. LANTUS [Suspect]
     Indication: TYPE 1 DIABETES MELLITUS
     Dosage: 38 IU, QD, SUBCUTANEOUS
     Route: 058
     Dates: start: 20090101

REACTIONS (3)
  - BLOOD GLUCOSE INCREASED [None]
  - VISION BLURRED [None]
  - VISUAL IMPAIRMENT [None]
